FAERS Safety Report 13664699 (Version 3)
Quarter: 2017Q4

REPORT INFORMATION
  Report Type: Spontaneous
  Country: US (occurrence: US)
  Receive Date: 20170619
  Receipt Date: 20171020
  Transmission Date: 20180320
  Serious: Yes (Hospitalization, Other)
  Sender: FDA-Public Use
  Company Number: US-GLAXOSMITHKLINE-US2017093078

PATIENT
  Age: 57 Year
  Sex: Male

DRUGS (2)
  1. ALBUTEROL + IPRATROPIUM BROMIDE NEBULISER SOLUTION [Concomitant]
     Active Substance: ALBUTEROL\IPRATROPIUM BROMIDE
  2. BREO ELLIPTA [Suspect]
     Active Substance: FLUTICASONE FUROATE\VILANTEROL TRIFENATATE
     Indication: CHRONIC OBSTRUCTIVE PULMONARY DISEASE
     Dosage: 1 PUFF(S), QD
     Route: 055
     Dates: start: 201412

REACTIONS (6)
  - Dyspnoea [Not Recovered/Not Resolved]
  - Throat irritation [Unknown]
  - Drug administration error [Unknown]
  - Pneumonia [Recovering/Resolving]
  - Drug ineffective [Unknown]
  - Product quality issue [Unknown]

NARRATIVE: CASE EVENT DATE: 201703
